FAERS Safety Report 22261668 (Version 2)
Quarter: 2023Q2

REPORT INFORMATION
  Report Type: Report from Study
  Country: AU (occurrence: AU)
  Receive Date: 20230427
  Receipt Date: 20230504
  Transmission Date: 20230722
  Serious: Yes (Other)
  Sender: FDA-Public Use
  Company Number: AU-ABBVIE-4741470

PATIENT
  Age: 49 Year
  Sex: Female
  Weight: 78 kg

DRUGS (15)
  1. VENETOCLAX [Suspect]
     Active Substance: VENETOCLAX
     Indication: Acute myeloid leukaemia
     Route: 048
     Dates: start: 20230329, end: 20230411
  2. CYTARABINE [Concomitant]
     Active Substance: CYTARABINE
     Indication: Acute myeloid leukaemia
     Dates: start: 20230329, end: 20230407
  3. SLOW K [Concomitant]
     Active Substance: POTASSIUM CHLORIDE
     Indication: Hypokalaemia
     Dates: start: 20230314
  4. ZOPICLONE [Concomitant]
     Active Substance: ZOPICLONE
     Indication: Nausea
     Dosage: 1 NOCTE
     Dates: start: 20230314
  5. ONDANSETRON [Concomitant]
     Active Substance: ONDANSETRON
     Indication: Prophylaxis of nausea and vomiting
     Dates: start: 20221214
  6. POTASSIUM CHLORIDE [Concomitant]
     Active Substance: POTASSIUM CHLORIDE
     Indication: Hypokalaemia
     Dates: start: 20230307, end: 20230314
  7. POTASSIUM CHLORIDE [Concomitant]
     Active Substance: POTASSIUM CHLORIDE
     Indication: Hypokalaemia
     Dates: end: 20230110
  8. METOCLOPRAMIDE [Concomitant]
     Active Substance: METOCLOPRAMIDE
     Indication: Prophylaxis of nausea and vomiting
     Dates: start: 20221214
  9. HUMAN RED BLOOD CELL [Concomitant]
     Active Substance: HUMAN RED BLOOD CELL
     Indication: Anaemia
     Dates: start: 20230308, end: 20230308
  10. FLUOXETINE [Concomitant]
     Active Substance: FLUOXETINE HYDROCHLORIDE
     Indication: Depression
  11. VALACYCLOVIR HYDROCHLORIDE [Concomitant]
     Active Substance: VALACYCLOVIR HYDROCHLORIDE
     Indication: Prophylaxis
  12. ESOMEPRAZOLE [Concomitant]
     Active Substance: ESOMEPRAZOLE
     Indication: Gastrooesophageal reflux disease
  13. PANADOL [Concomitant]
     Active Substance: ACETAMINOPHEN
     Indication: Arthralgia
     Dates: start: 20221220
  14. EVUSHELD [Concomitant]
     Active Substance: CILGAVIMAB\TIXAGEVIMAB
     Indication: Prophylaxis
     Dates: start: 20221229, end: 20221229
  15. AMILORIDE [Concomitant]
     Active Substance: AMILORIDE
     Indication: Hypokalaemia

REACTIONS (1)
  - Cytopenia [Recovering/Resolving]

NARRATIVE: CASE EVENT DATE: 20230421
